FAERS Safety Report 6084063-6 (Version None)
Quarter: 2009Q1

REPORT INFORMATION
  Report Type: 
  Country: None (occurrence: None)
  Receive Date: 20090219
  Receipt Date: 20090218
  Transmission Date: 20090719
  Serious: Yes (Other)
  Sender: FDA-Public Use
  Company Number: FR-BRISTOL-MYERS SQUIBB COMPANY-14510481

PATIENT
  Age: 35 Year
  Sex: Female
  Weight: 47 kg

DRUGS (1)
  1. KENACORT [Suspect]
     Dosage: KENACORT 80 MG - 1 INJECTION/YEAR FOR 3-4 YEARS

REACTIONS (4)
  - DEPRESSION [None]
  - MUSCLE ATROPHY [None]
  - MUSCLE INJURY [None]
  - SLEEP DISORDER [None]
